FAERS Safety Report 10189379 (Version 4)
Quarter: 2014Q3

REPORT INFORMATION
  Report Type: Report from Study
  Country: CA (occurrence: CA)
  Receive Date: 20140522
  Receipt Date: 20140902
  Transmission Date: 20150326
  Serious: Yes (Other)
  Sender: FDA-Public Use
  Company Number: CA-BRISTOL-MYERS SQUIBB COMPANY-20693024

PATIENT
  Age: 74 Year
  Sex: Male

DRUGS (1)
  1. SPRYCEL [Suspect]
     Active Substance: DASATINIB
     Indication: CHRONIC MYELOID LEUKAEMIA
     Dosage: RECENT DOSE 23 APR14??INTIAL: 100 MG?REDUCED TO :70 MG?PRESENTLY: 50 MG
     Route: 048
     Dates: start: 20140228, end: 201406

REACTIONS (6)
  - Blood count abnormal [Not Recovered/Not Resolved]
  - Cataract [Unknown]
  - Anaemia [Recovered/Resolved]
  - Red blood cell count decreased [Unknown]
  - Platelet count decreased [Unknown]
  - Neutropenia [Unknown]

NARRATIVE: CASE EVENT DATE: 2014
